FAERS Safety Report 6059082-6 (Version None)
Quarter: 2009Q1

REPORT INFORMATION
  Report Type: 
  Country: None (occurrence: None)
  Receive Date: 20090130
  Receipt Date: 20090129
  Transmission Date: 20090719
  Serious: Yes (Other)
  Sender: FDA-Public Use
  Company Number: D0060339A

PATIENT
  Age: 2 Year
  Sex: Female

DRUGS (1)
  1. CEFUHEXAL [Suspect]
     Route: 048

REACTIONS (2)
  - CYANOSIS [None]
  - MALAISE [None]
